FAERS Safety Report 5726656-9 (Version None)
Quarter: 2008Q2

REPORT INFORMATION
  Report Type: 
  Country: None (occurrence: None)
  Receive Date: 20080502
  Receipt Date: 20080422
  Transmission Date: 20081010
  Serious: Yes (Hospitalization)
  Sender: FDA-Public Use
  Company Number: US-ROCHE-561895

PATIENT
  Sex: Female

DRUGS (12)
  1. XELODA [Suspect]
     Indication: NEUROENDOCRINE CARCINOMA
     Dosage: 1150 MG, BID
     Route: 065
  2. BEVACIZUMAB [Suspect]
     Indication: NEUROENDOCRINE CARCINOMA
     Dosage: 7.5 MG/KG, Q3W
     Route: 042
  3. OXALIPLATIN [Suspect]
     Indication: NEUROENDOCRINE CARCINOMA
     Dosage: 130 MG/M2, UNK
     Route: 042
  4. ACTONEL [Concomitant]
     Indication: DRUG USE FOR UNKNOWN INDICATION
     Dosage: 35 MG, 1/WEEK
  5. DARVOCET-N [Concomitant]
     Indication: DRUG USE FOR UNKNOWN INDICATION
     Dosage: 100 MG, PRN
  6. DARVOCET-N [Concomitant]
     Dosage: 100 MG, PRN
  7. OXYCONTIN [Concomitant]
     Indication: DRUG USE FOR UNKNOWN INDICATION
     Dosage: 20 MG, QPM
  8. TEMAZEPAM [Concomitant]
     Indication: DRUG USE FOR UNKNOWN INDICATION
     Dosage: 15 MG, QPM
  9. COMPAZINE [Concomitant]
     Indication: DRUG USE FOR UNKNOWN INDICATION
     Dosage: 10 MG, PRN
  10. COLACE [Concomitant]
     Indication: DRUG USE FOR UNKNOWN INDICATION
     Dosage: 200 MG, QD
  11. CELEXA [Concomitant]
     Indication: DRUG USE FOR UNKNOWN INDICATION
     Dosage: 20 MG, QD
  12. MEGACE [Concomitant]
     Indication: DRUG USE FOR UNKNOWN INDICATION
     Dosage: 800 MG, BID

REACTIONS (2)
  - ASTHENIA [None]
  - HYPOVOLAEMIA [None]
